FAERS Safety Report 5213683-3 (Version None)
Quarter: 2007Q1

REPORT INFORMATION
  Report Type: 
  Country: None (occurrence: None)
  Receive Date: 20070119
  Receipt Date: 20070110
  Transmission Date: 20070707
  Serious: Yes (Other)
  Sender: FDA-Public Use
  Company Number: PFIZER INC-2007003500

PATIENT
  Sex: Female
  Weight: 76.2 kg

DRUGS (6)
  1. LIPITOR [Suspect]
     Indication: BLOOD CHOLESTEROL INCREASED
  2. ZOLOFT [Concomitant]
  3. BENAZEPRIL HYDROCHLORIDE [Concomitant]
  4. FLEXERIL [Concomitant]
  5. ASPIRIN [Concomitant]
  6. XANAX [Concomitant]

REACTIONS (6)
  - ABDOMINAL DISTENSION [None]
  - BACK PAIN [None]
  - BLOOD CHOLESTEROL INCREASED [None]
  - HEPATOMEGALY [None]
  - MALAISE [None]
  - MUSCULOSKELETAL CHEST PAIN [None]
